FAERS Safety Report 19699610 (Version 1)
Quarter: 2021Q3

REPORT INFORMATION
  Report Type: Spontaneous
  Country: IN (occurrence: IN)
  Receive Date: 20210813
  Receipt Date: 20210813
  Transmission Date: 20211014
  Serious: Yes (Other)
  Sender: FDA-Public Use
  Company Number: IN-PFIZER INC-202101008412

PATIENT
  Age: 56 Year

DRUGS (2)
  1. BROMCOL [Concomitant]
     Dosage: UNK, 1X/DAY
  2. CRIZALK [Suspect]
     Active Substance: CRIZOTINIB
     Indication: LUNG NEOPLASM MALIGNANT
     Dosage: 250 MG, 2X/DAY
     Route: 048
     Dates: start: 20200312

REACTIONS (1)
  - Hypothyroidism [Unknown]
